FAERS Safety Report 9565685 (Version 19)
Quarter: 2014Q4

REPORT INFORMATION
  Report Type: Report from Study
  Country: CA (occurrence: CA)
  Receive Date: 20130930
  Receipt Date: 20141007
  Transmission Date: 20150529
  Serious: Yes (Life-Threatening, Hospitalization, Other)
  Sender: FDA-Public Use
  Company Number: CA-ROCHE-1235131

PATIENT
  Age: 50 Year
  Sex: Female
  Weight: 60 kg

DRUGS (27)
  1. PERJETA [Suspect]
     Active Substance: PERTUZUMAB
     Route: 042
     Dates: start: 20130827, end: 20130929
  2. TAXOTERE [Suspect]
     Active Substance: DOCETAXEL
     Indication: BREAST CANCER
     Route: 042
     Dates: start: 20130515, end: 20131201
  3. PANTOPRAZOLE [Concomitant]
     Active Substance: PANTOPRAZOLE SODIUM
  4. MOMETASONE [Concomitant]
     Active Substance: MOMETASONE
  5. DECADRON [Concomitant]
     Active Substance: DEXAMETHASONE
     Route: 048
  6. PERJETA [Suspect]
     Active Substance: PERTUZUMAB
     Route: 042
     Dates: start: 20130930, end: 20140513
  7. ZYLOPRIM [Concomitant]
     Active Substance: ALLOPURINOL
     Route: 065
  8. DOCUSATE SODIUM. [Concomitant]
     Active Substance: DOCUSATE SODIUM
     Route: 065
  9. COLACE [Concomitant]
     Active Substance: DOCUSATE SODIUM
     Route: 065
  10. JAMP SENNA [Concomitant]
     Route: 065
  11. PERJETA [Suspect]
     Active Substance: PERTUZUMAB
     Indication: HER-2 POSITIVE BREAST CANCER
     Route: 042
     Dates: start: 20130604, end: 20130731
  12. HERCEPTIN [Suspect]
     Active Substance: TRASTUZUMAB
     Indication: BREAST CANCER METASTATIC
     Route: 042
     Dates: start: 20130515, end: 20140601
  13. CALCITE D [Concomitant]
     Active Substance: CALCIUM CARBONATE
     Route: 048
  14. CALCIT [Concomitant]
     Route: 048
  15. VENTOLIN [Concomitant]
     Active Substance: ALBUTEROL SULFATE
     Dosage: AS NEEDED
     Route: 065
  16. MELSON [Concomitant]
     Route: 065
  17. MELSON [Concomitant]
     Route: 065
  18. DECADRON [Concomitant]
     Active Substance: DEXAMETHASONE
     Route: 048
  19. PROCHLORPERAZINE. [Concomitant]
     Active Substance: PROCHLORPERAZINE
     Route: 048
  20. AREDIA [Concomitant]
     Active Substance: PAMIDRONATE DISODIUM
     Route: 065
  21. NOVO-PERIDOL [Concomitant]
  22. PERJETA [Suspect]
     Active Substance: PERTUZUMAB
     Route: 042
     Dates: start: 20130801, end: 20130826
  23. MS CONTIN [Concomitant]
     Active Substance: MORPHINE SULFATE
     Indication: PAIN
     Dosage: AS REQUIRED
     Route: 048
  24. NOVO-GESIC (CANADA) [Concomitant]
     Route: 048
  25. MONTELUKAST [Concomitant]
     Active Substance: MONTELUKAST SODIUM
  26. ATIVAN [Concomitant]
     Active Substance: LORAZEPAM
     Route: 048
  27. SENOKOT [Concomitant]
     Active Substance: SENNOSIDES
     Dosage: 1 TABLET
     Route: 048

REACTIONS (28)
  - Weight increased [Unknown]
  - Fatigue [Recovering/Resolving]
  - Nausea [Unknown]
  - Arthralgia [Not Recovered/Not Resolved]
  - Paraesthesia [Not Recovered/Not Resolved]
  - Anaphylactic reaction [Unknown]
  - Myalgia [Not Recovered/Not Resolved]
  - Oral herpes [Unknown]
  - Hypoaesthesia [Recovering/Resolving]
  - Hot flush [Unknown]
  - Joint stiffness [Unknown]
  - Hyperhidrosis [Not Recovered/Not Resolved]
  - Flushing [Not Recovered/Not Resolved]
  - Fatigue [Not Recovered/Not Resolved]
  - Hypotension [Unknown]
  - Back pain [Not Recovered/Not Resolved]
  - Bone pain [Not Recovered/Not Resolved]
  - Dizziness [Not Recovered/Not Resolved]
  - Neutropenia [Not Recovered/Not Resolved]
  - Dyspepsia [Recovered/Resolved]
  - Lacrimation increased [Not Recovered/Not Resolved]
  - Back pain [Unknown]
  - Malignant neoplasm progression [Unknown]
  - Vomiting [Unknown]
  - Muscle rigidity [Unknown]
  - Musculoskeletal stiffness [Not Recovered/Not Resolved]
  - Pruritus [Not Recovered/Not Resolved]
  - Pain [Not Recovered/Not Resolved]

NARRATIVE: CASE EVENT DATE: 20130605
